FAERS Safety Report 9604033 (Version 1)
Quarter: 2013Q4

REPORT INFORMATION
  Report Type: Spontaneous
  Country: US (occurrence: US)
  Receive Date: 20131008
  Receipt Date: 20131008
  Transmission Date: 20140711
  Serious: Yes (Hospitalization)
  Sender: FDA-Public Use
  Company Number: US-JNJFOC-20131000389

PATIENT
  Age: 12 Month
  Sex: Female

DRUGS (1)
  1. BENADRYL ALLERGY SINUS LIQUID [Suspect]
     Indication: SEASONAL ALLERGY
     Dosage: 1 TEASPOON
     Route: 048

REACTIONS (2)
  - Eye movement disorder [Recovered/Resolved]
  - Wrong patient received medication [Unknown]
